FAERS Safety Report 4297784-2 (Version None)
Quarter: 2004Q1

REPORT INFORMATION
  Report Type: 
  Country: None (occurrence: None)
  Receive Date: 20040126
  Receipt Date: 20031112
  Transmission Date: 20041129
  Serious: No
  Sender: FDA-Public Use
  Company Number: USA031051098

PATIENT
  Age: 49 Year
  Sex: Male
  Weight: 73 kg

DRUGS (14)
  1. STRATTERA [Suspect]
     Indication: ATTENTION DEFICIT/HYPERACTIVITY DISORDER
     Dosage: 60 MG/DAY
     Dates: start: 20031001
  2. STRATTERA [Suspect]
     Indication: DEPRESSION
     Dosage: 60 MG/DAY
     Dates: start: 20031001
  3. KALETRA [Concomitant]
  4. LEXAPRO [Concomitant]
  5. VIREAD [Concomitant]
  6. ZIAGEN [Concomitant]
  7. VALIUM [Concomitant]
  8. ATENOLOL [Concomitant]
  9. EPIVIR [Concomitant]
  10. PREVACID [Concomitant]
  11. SUDAFED 12 HOUR [Concomitant]
  12. ASPIRIN W/CODEINE [Concomitant]
  13. TRICOR [Concomitant]
  14. RITONAVIR [Concomitant]

REACTIONS (19)
  - ASTHENIA [None]
  - BLOOD HIV RNA INCREASED [None]
  - DECREASED APPETITE [None]
  - DEHYDRATION [None]
  - DIZZINESS [None]
  - DRUG INEFFECTIVE [None]
  - DRUG INTERACTION [None]
  - DRY THROAT [None]
  - EXERCISE CAPACITY DECREASED [None]
  - FEELING ABNORMAL [None]
  - FEELING HOT [None]
  - HEART RATE DECREASED [None]
  - INSOMNIA [None]
  - ORTHOSTATIC HYPOTENSION [None]
  - PARAESTHESIA [None]
  - PSYCHOMOTOR HYPERACTIVITY [None]
  - SOMNOLENCE [None]
  - STARING [None]
  - VOCAL CORD PARALYSIS [None]
